FAERS Safety Report 5748038-6 (Version None)
Quarter: 2008Q2

REPORT INFORMATION
  Report Type: 
  Country: None (occurrence: None)
  Receive Date: 20080523
  Receipt Date: 20080509
  Transmission Date: 20081010
  Serious: Yes (Other)
  Sender: FDA-Public Use
  Company Number: DE-GENENTECH-261277

PATIENT
  Sex: Male
  Weight: 110 kg

DRUGS (3)
  1. AVASTIN [Suspect]
     Indication: COLON CANCER
     Dosage: 5 MG/KG, Q14D
     Route: 042
     Dates: start: 20071024, end: 20080331
  2. IRINOTECAN HCL [Suspect]
     Indication: COLON CANCER
     Dosage: 180 MG/M2, Q14D
     Route: 042
     Dates: start: 20080114, end: 20080331
  3. FLUOROURACIL [Suspect]
     Indication: COLON CANCER
     Dosage: 2400 MG/M2, Q14D
     Route: 042
     Dates: start: 20071024, end: 20080331

REACTIONS (5)
  - CEREBRAL MICROANGIOPATHY [None]
  - CONFUSIONAL STATE [None]
  - DEMENTIA [None]
  - MEMORY IMPAIRMENT [None]
  - POLYNEUROPATHY [None]
